FAERS Safety Report 7368775-X (Version None)
Quarter: 2011Q1

REPORT INFORMATION
  Report Type: 
  Country: None (occurrence: None)
  Receive Date: 20110321
  Receipt Date: 20110321
  Transmission Date: 20110831
  Serious: Yes (Other)
  Sender: FDA-Public Use
  Company Number: None

PATIENT
  Sex: Male
  Weight: 72.5755 kg

DRUGS (8)
  1. FOLIC ACID [Concomitant]
  2. FUROSEMIDE [Concomitant]
  3. PRAVASTATIN SODIUM [Suspect]
     Indication: BLOOD CHOLESTEROL INCREASED
     Dosage: 40 MG ONCE AT BEDTIME PO
     Route: 048
     Dates: start: 20110317, end: 20110317
  4. METHADONE [Concomitant]
  5. AMLODIPINE-BENZEPRIL [Concomitant]
  6. METHOTREXATE [Concomitant]
  7. LEXAPRO [Concomitant]
  8. PREDNISONE [Concomitant]

REACTIONS (3)
  - DIZZINESS [None]
  - PRODUCT SUBSTITUTION ISSUE [None]
  - DISORIENTATION [None]
